FAERS Safety Report 8156371 (Version 4)
Quarter: 2013Q1

REPORT INFORMATION
  Report Type: Report from Study
  Country: PL (occurrence: PL)
  Receive Date: 20110926
  Receipt Date: 20130103
  Transmission Date: 20140127
  Serious: Yes (Hospitalization, Other)
  Sender: FDA-Public Use
  Company Number: PHHO2008PL08926

PATIENT
  Age: 38 Year
  Sex: Female
  Weight: 56 kg

DRUGS (3)
  1. FTY [Suspect]
     Indication: MULTIPLE SCLEROSIS
     Dosage: 1.25 MG, QD
     Route: 048
     Dates: start: 20070309, end: 20081009
  2. DALACIN [Concomitant]
  3. LORAFEN [Concomitant]

REACTIONS (2)
  - Invasive ductal breast carcinoma [Recovering/Resolving]
  - Metastatic neoplasm [Recovered/Resolved with Sequelae]
